FAERS Safety Report 13881801 (Version 3)
Quarter: 2017Q3

REPORT INFORMATION
  Report Type: Spontaneous
  Country: AU (occurrence: AU)
  Receive Date: 20170818
  Receipt Date: 20170929
  Transmission Date: 20171127
  Serious: Yes (Hospitalization)
  Sender: FDA-Public Use
  Company Number: AU-PFIZER INC-2017349678

PATIENT
  Sex: Male

DRUGS (2)
  1. SODIUM CHLORIDE. [Suspect]
     Active Substance: SODIUM CHLORIDE
     Dosage: UNK
  2. CHLORHEXIDINE, CETRIMIDE [Suspect]
     Active Substance: CETRIMIDE\CHLORHEXIDINE
     Indication: EYE IRRIGATION
     Dosage: 30 ML, SINGLE
     Dates: start: 20170714

REACTIONS (4)
  - Corneal abrasion [Recovered/Resolved]
  - Wrong drug administered [Recovered/Resolved]
  - Product selection error [Recovered/Resolved]
  - Chemical eye injury [Recovered/Resolved]

NARRATIVE: CASE EVENT DATE: 20170714
